FAERS Safety Report 5118289-2 (Version None)
Quarter: 2006Q4

REPORT INFORMATION
  Report Type: 
  Country: None (occurrence: None)
  Receive Date: 20061002
  Receipt Date: 20060818
  Transmission Date: 20070319
  Serious: No
  Sender: FDA-Public Use
  Company Number: US-BRISTOL-MYERS SQUIBB COMPANY-13481528

PATIENT
  Age: 64 Year
  Sex: Female
  Weight: 81 kg

DRUGS (11)
  1. ORENCIA [Suspect]
     Indication: RHEUMATOID ARTHRITIS
     Route: 042
     Dates: start: 20060726
  2. PREDNISONE [Concomitant]
  3. LORCET-HD [Concomitant]
  4. RISTORIL [Concomitant]
  5. SOMA [Concomitant]
  6. PRILOSEC [Concomitant]
  7. LASIX [Concomitant]
  8. BIOTIN [Concomitant]
  9. LOTREL [Concomitant]
  10. VITAMIN B-12 [Concomitant]
  11. CALCET [Concomitant]

REACTIONS (1)
  - INCREASED TENDENCY TO BRUISE [None]
